FAERS Safety Report 8838934 (Version 2)
Quarter: 2012Q4

REPORT INFORMATION
  Report Type: Report from Study
  Country: FR (occurrence: FR)
  Receive Date: 20121015
  Receipt Date: 20121115
  Transmission Date: 20130627
  Serious: Yes (Hospitalization)
  Sender: FDA-Public Use
  Company Number: FR-009507513-1210FRA004356

PATIENT
  Age: 51 Year
  Sex: Male
  Weight: 51 kg

DRUGS (10)
  1. BOCEPREVIR [Suspect]
     Indication: HEPATITIS C
     Dosage: 800 mg, tid
     Dates: start: 20111216, end: 20121005
  2. VIRAFERONPEG [Suspect]
     Indication: HEPATITIS C
     Dosage: 80 Microgram, qw
     Dates: start: 20111118, end: 20121005
  3. REBETOL [Suspect]
     Indication: HEPATITIS C
     Dosage: 800 mg, qd
     Dates: start: 20111118, end: 20121005
  4. CRESTOR [Suspect]
     Indication: HYPERCHOLESTEROLAEMIA
     Dosage: UNK
     Dates: start: 20111201
  5. REYATAZ [Suspect]
     Indication: HIV INFECTION
     Dosage: 300 mg, qd
     Dates: start: 20110808
  6. TRUVADA [Concomitant]
     Indication: HIV INFECTION
     Dosage: 1 DF, qd
     Dates: start: 20051222
  7. NEORECORMON [Concomitant]
     Indication: ANAEMIA
     Dosage: 30000 IU, qw
     Dates: start: 20120407
  8. SPECIAFOLDINE [Concomitant]
     Indication: ANAEMIA
     Dosage: UNK
     Dates: start: 20120407
  9. SEROPLEX [Concomitant]
     Indication: DEPRESSION
     Dosage: UNK
     Dates: start: 201204
  10. NORVIR [Suspect]
     Indication: HIV INFECTION
     Dosage: UNK
     Dates: start: 20120808

REACTIONS (1)
  - Pancreatitis acute [Recovering/Resolving]
